FAERS Safety Report 6312440-4 (Version None)
Quarter: 2009Q3

REPORT INFORMATION
  Report Type: 
  Country: None (occurrence: None)
  Receive Date: 20090813
  Receipt Date: 20090526
  Transmission Date: 20100115
  Serious: Yes (Hospitalization, Other)
  Sender: FDA-Public Use
  Company Number: 000845

PATIENT
  Sex: Female
  Weight: 60 kg

DRUGS (4)
  1. VIMPAT [Suspect]
     Dosage: (100 MG, 100 MG ONCE ORAL)
     Route: 048
     Dates: start: 20090513, end: 20090513
  2. FRISIUM (FRISIUM) (NOT SPECIFIED) [Suspect]
     Dosage: (1 DF, 1 TABLET ONCE ORAL)
     Route: 048
     Dates: start: 20090513, end: 20090513
  3. LAMICTAL [Suspect]
     Dosage: (30 DF, 30 TABLET ONCE ORAL)
     Route: 048
     Dates: start: 20090513, end: 20090513
  4. TOPAMAX [Suspect]
     Dosage: (150 MG, 150 MG ONCE ORAL)
     Route: 048
     Dates: start: 20090513, end: 20090513

REACTIONS (4)
  - INTENTIONAL OVERDOSE [None]
  - NAUSEA [None]
  - SUICIDE ATTEMPT [None]
  - VOMITING [None]
